FAERS Safety Report 10497188 (Version 1)
Quarter: 2014Q3

REPORT INFORMATION
  Report Type: Spontaneous
  Country: US (occurrence: None)
  Receive Date: 20140815
  Receipt Date: 20140815
  Transmission Date: 20150326
  Serious: Yes (Hospitalization, Other)
  Sender: FDA-Public Use
  Company Number: ADR-2014-00763

PATIENT
  Age: 38 Year
  Sex: Male

DRUGS (1)
  1. BACLOFEN INTRATHECAL 2000 MCG/ML (CANGENE) [Suspect]
     Active Substance: BACLOFEN
     Indication: MUSCLE SPASTICITY
     Dosage: 634.7 MCG/DAY: SEE B5

REACTIONS (1)
  - Hypertonia [None]

NARRATIVE: CASE EVENT DATE: 20140429
